FAERS Safety Report 8041999-4 (Version None)
Quarter: 2012Q1

REPORT INFORMATION
  Report Type: 
  Country: None (occurrence: None)
  Receive Date: 20120112
  Receipt Date: 20111228
  Transmission Date: 20120608
  Serious: Yes (Death)
  Sender: FDA-Public Use
  Company Number: US-UCBSA-048958

PATIENT
  Age: 17 Year
  Sex: Female

DRUGS (18)
  1. IBUPROFEN [Suspect]
     Route: 048
  2. MAGNESIUM [Suspect]
     Route: 048
  3. PSEUDOEPHEDRINE HCL [Suspect]
     Route: 048
  4. HYOSCYAMINE [Suspect]
     Route: 048
  5. CITALOPRAM HYDROBROMIDE [Suspect]
     Route: 048
  6. ACETAMINOPHEN AND HYDROCODONE BITARTRATE [Suspect]
     Route: 048
  7. LOPERAMIDE [Suspect]
     Route: 048
  8. PHENOL [Suspect]
     Route: 048
  9. NAPROXEN [Suspect]
     Route: 048
  10. METHYLPHENIDATE [Suspect]
     Route: 048
  11. ROSUVASTATIN [Suspect]
     Route: 048
  12. LAXATIVE [Suspect]
     Route: 048
  13. ETHANOL [Suspect]
     Route: 048
  14. HALOPERIDOL [Suspect]
     Route: 048
  15. MONTELUKAST [Suspect]
     Route: 048
  16. DEXTROMETHORPHAN [Suspect]
     Route: 048
  17. FLUOXETINE [Suspect]
     Route: 048
  18. GUAIFENESIN [Suspect]
     Route: 048

REACTIONS (1)
  - COMPLETED SUICIDE [None]
